FAERS Safety Report 4372373-X (Version None)
Quarter: 2004Q2

REPORT INFORMATION
  Report Type: 
  Country: None (occurrence: None)
  Receive Date: 20040526
  Receipt Date: 20040510
  Transmission Date: 20050107
  Serious: Yes (Hospitalization)
  Sender: FDA-Public Use
  Company Number: 2004IM000656

PATIENT
  Age: 36 Year
  Sex: Male

DRUGS (2)
  1. INFERAX (INTERFERON ALFACON-1) [Suspect]
     Dosage: 9 UG; BID; INTRAMUSCULAR
     Route: 030
     Dates: start: 20030901
  2. RIBAVIRIN [Suspect]

REACTIONS (1)
  - TRANSIENT ISCHAEMIC ATTACK [None]
